FAERS Safety Report 6525940-9 (Version None)
Quarter: 2010Q1

REPORT INFORMATION
  Report Type: 
  Country: None (occurrence: None)
  Receive Date: 20100104
  Receipt Date: 20091221
  Transmission Date: 20100710
  Serious: Yes (Hospitalization)
  Sender: FDA-Public Use
  Company Number: DE-PFIZER INC-2009293529

PATIENT
  Age: 76 Year
  Sex: Male

DRUGS (13)
  1. LYRICA [Suspect]
     Dosage: 25 MG, 1X/DAY
     Route: 048
     Dates: start: 20090713, end: 20090714
  2. LYRICA [Suspect]
     Dosage: 50 MG, 1X/DAY
     Route: 048
     Dates: start: 20090715, end: 20090715
  3. LYRICA [Suspect]
     Dosage: 75 MG, 1X/DAY
     Route: 048
     Dates: start: 20090716, end: 20090717
  4. LYRICA [Suspect]
     Dosage: 100 MG, 1X/DAY
     Dates: start: 20090718, end: 20090729
  5. FLUMID [Concomitant]
     Dosage: 750 MG, 1X/DAY
     Route: 048
  6. TROSPI [Concomitant]
     Dosage: 90 MG, 1X/DAY
     Route: 048
  7. ASPIRIN [Concomitant]
     Dosage: 100 MG, 1X/DAY
     Route: 048
  8. SEROQUEL [Concomitant]
     Dosage: 200 MG, 1X/DAY
     Route: 048
     Dates: start: 20090707, end: 20090714
  9. SEROQUEL [Concomitant]
     Dosage: 250 MG, 1X/DAY
     Route: 048
     Dates: start: 20090715, end: 20090717
  10. SEROQUEL [Concomitant]
     Dosage: 200 MG, 1X/DAY
     Route: 048
     Dates: start: 20090718
  11. ZOPICLONE [Concomitant]
     Dosage: 7.5 MG, 1X/DAY
     Route: 048
     Dates: start: 20090715, end: 20090729
  12. EXELON [Concomitant]
     Dosage: 4.6 MG, 1X/DAY
     Route: 048
     Dates: start: 20090717, end: 20090804
  13. MELPERONE [Concomitant]
     Dosage: 50 MG, 1X/DAY
     Route: 048
     Dates: start: 20090725

REACTIONS (5)
  - ASTERIXIS [None]
  - GAIT DISTURBANCE [None]
  - HYPOTONIA [None]
  - INTENTION TREMOR [None]
  - MUSCULAR WEAKNESS [None]
